FAERS Safety Report 23173881 (Version 1)
Quarter: 2023Q4

REPORT INFORMATION
  Report Type: Spontaneous
  Country: US (occurrence: US)
  Receive Date: 20231111
  Receipt Date: 20231111
  Transmission Date: 20240110
  Serious: No
  Sender: FDA-Public Use
  Company Number: US-VIIV HEALTHCARE LIMITED-US2023151674

PATIENT
  Sex: Male

DRUGS (2)
  1. SELZENTRY [Suspect]
     Active Substance: MARAVIROC
     Indication: Encephalomyelitis
     Dosage: UNK
  2. SELZENTRY [Suspect]
     Active Substance: MARAVIROC
     Indication: Encephalitis

REACTIONS (1)
  - Off label use [Unknown]
